FAERS Safety Report 14964847 (Version 3)
Quarter: 2020Q2

REPORT INFORMATION
  Report Type: Spontaneous
  Country: ES (occurrence: ES)
  Receive Date: 20180601
  Receipt Date: 20200414
  Transmission Date: 20200713
  Serious: Yes (Hospitalization)
  Sender: FDA-Public Use
  Company Number: PHHY2018ES012173

PATIENT
  Age: 74 Year
  Sex: Male

DRUGS (4)
  1. OMEPRAZOL [Suspect]
     Active Substance: OMEPRAZOLE
     Indication: ORCHITIS
     Dosage: 20 MG, QD
     Route: 048
     Dates: start: 20180216, end: 20180222
  2. ENANTYUM [Suspect]
     Active Substance: DEXKETOPROFEN TROMETAMOL
     Indication: ORCHITIS
     Dosage: 25 MG, Q12H
     Route: 048
     Dates: start: 20180216, end: 20180222
  3. CEFIXIME. [Suspect]
     Active Substance: CEFIXIME
     Indication: ORCHITIS
     Dosage: 400 MG, Q12H (400 MG Q24H 7 DAYS MORE)
     Route: 048
     Dates: start: 20180216, end: 20180302
  4. TOBRAMYCIN. [Suspect]
     Active Substance: TOBRAMYCIN
     Indication: ORCHITIS
     Dosage: 200 MG, QD
     Route: 030
     Dates: start: 20180216, end: 20180220

REACTIONS (3)
  - Pain [Unknown]
  - Erythema multiforme [Unknown]
  - Pruritus [Unknown]

NARRATIVE: CASE EVENT DATE: 20180301
